FAERS Safety Report 14265020 (Version 1)
Quarter: 2017Q4

REPORT INFORMATION
  Report Type: Spontaneous
  Country: US (occurrence: US)
  Receive Date: 20171208
  Receipt Date: 20171208
  Transmission Date: 20180321
  Serious: No
  Sender: FDA-Public Use
  Company Number: US-NOVOPROD-540204

PATIENT
  Age: 57 Year
  Sex: Female

DRUGS (1)
  1. NOVOLIN 70/30 [Suspect]
     Active Substance: INSULIN HUMAN
     Indication: TYPE 1 DIABETES MELLITUS
     Route: 058
     Dates: end: 2012

REACTIONS (3)
  - Fatigue [Recovered/Resolved]
  - Drug hypersensitivity [Not Recovered/Not Resolved]
  - Palpitations [Recovered/Resolved]
